FAERS Safety Report 5153816-0 (Version None)
Quarter: 2006Q4

REPORT INFORMATION
  Report Type: 
  Country: None (occurrence: None)
  Receive Date: 20061120
  Receipt Date: 20061110
  Transmission Date: 20070319
  Serious: Yes (Congenital Anomaly)
  Sender: FDA-Public Use
  Company Number: CH-ELI_LILLY_AND_COMPANY-CH200611002025

PATIENT

DRUGS (5)
  1. ZYPREXA [Suspect]
     Route: 064
  2. LITHIOFOR /01629101/ [Concomitant]
     Route: 064
  3. ENTUMIN                                 /ITA/ [Concomitant]
     Route: 064
  4. COCAINE [Concomitant]
     Route: 064
  5. CANNABIS [Concomitant]
     Route: 064

REACTIONS (4)
  - CONGENITAL ANOMALY [None]
  - DRUG EXPOSURE DURING PREGNANCY [None]
  - TALIPES [None]
  - URINARY TRACT MALFORMATION [None]
